FAERS Safety Report 6135652-1 (Version None)
Quarter: 2009Q1

REPORT INFORMATION
  Report Type: 
  Country: None (occurrence: None)
  Receive Date: 20090327
  Receipt Date: 20080529
  Transmission Date: 20090719
  Serious: No
  Sender: FDA-Public Use
  Company Number: US-ASTRAZENECA-2008UW09277

PATIENT
  Age: 40 Year
  Sex: Male

DRUGS (1)
  1. LISINOPRIL [Suspect]
     Route: 048

REACTIONS (5)
  - COUGH [None]
  - DRUG INEFFECTIVE [None]
  - DRY THROAT [None]
  - HYPERCHLORHYDRIA [None]
  - HYPERSENSITIVITY [None]
